FAERS Safety Report 9587197 (Version 3)
Quarter: 2013Q4

REPORT INFORMATION
  Report Type: Spontaneous
  Country: US (occurrence: US)
  Receive Date: 20131003
  Receipt Date: 20131223
  Transmission Date: 20140711
  Serious: Yes (Hospitalization)
  Sender: FDA-Public Use
  Company Number: US-GLAXOSMITHKLINE-A1043100A

PATIENT
  Age: 56 Year
  Sex: Male

DRUGS (8)
  1. ADVAIR [Suspect]
     Indication: ASTHMA
     Dosage: 1PUFF TWICE PER DAY
     Route: 055
  2. LISINOPRIL [Concomitant]
  3. CLOPIDOGREL [Concomitant]
  4. LEVOTHYROXINE [Concomitant]
  5. TEMAZEPAM [Concomitant]
  6. MIRTAZAPINE [Concomitant]
  7. ALBUTEROL [Concomitant]
  8. PROAIR HFA [Concomitant]
     Route: 055

REACTIONS (6)
  - Respiratory distress [Recovering/Resolving]
  - Asthma [Recovering/Resolving]
  - Hypertension [Recovering/Resolving]
  - Drug ineffective [Recovering/Resolving]
  - Cataract [Unknown]
  - Product quality issue [Unknown]
